FAERS Safety Report 23422920 (Version 1)
Quarter: 2024Q1

REPORT INFORMATION
  Report Type: Spontaneous
  Country: US (occurrence: None)
  Receive Date: 20240118
  Receipt Date: 20240118
  Transmission Date: 20240409
  Serious: No
  Sender: FDA-Public Use
  Company Number: None

PATIENT

DRUGS (2)
  1. TYLENOL [Suspect]
     Active Substance: ACETAMINOPHEN
  2. TYLENOL [Suspect]
     Active Substance: ACETAMINOPHEN

REACTIONS (4)
  - Product label issue [None]
  - Product selection error [None]
  - Product label issue [None]
  - Product packaging quantity issue [None]
